FAERS Safety Report 5273375-1 (Version None)
Quarter: 2007Q1

REPORT INFORMATION
  Report Type: 
  Country: None (occurrence: None)
  Receive Date: 20070322
  Receipt Date: 20070309
  Transmission Date: 20070707
  Serious: Yes (Hospitalization)
  Sender: FDA-Public Use
  Company Number: US-ELI_LILLY_AND_COMPANY-US200703002339

PATIENT
  Age: 49 Year
  Sex: Male

DRUGS (2)
  1. HUMULIN R [Suspect]
     Dosage: UNK, UNK
     Dates: start: 20060101
  2. LANTUS [Concomitant]

REACTIONS (3)
  - BLOOD GLUCOSE INCREASED [None]
  - COLONOSCOPY [None]
  - HYPOAESTHESIA [None]
